FAERS Safety Report 7879647-6 (Version None)
Quarter: 2011Q4

REPORT INFORMATION
  Report Type: 
  Country: None (occurrence: None)
  Receive Date: 20111101
  Receipt Date: 20111021
  Transmission Date: 20120403
  Serious: Yes (Congenital Anomaly)
  Sender: FDA-Public Use
  Company Number: US-GLAXOSMITHKLINE-A0951399A

PATIENT

DRUGS (1)
  1. PAXIL [Suspect]
     Indication: PRODUCT USED FOR UNKNOWN INDICATION
     Route: 064
     Dates: start: 20070101, end: 20080101

REACTIONS (6)
  - CARDIAC DISORDER [None]
  - CONGENITAL ANOMALY [None]
  - BODY HEIGHT BELOW NORMAL [None]
  - MATERNAL EXPOSURE DURING PREGNANCY [None]
  - GROWTH RETARDATION [None]
  - SMALL FOR DATES BABY [None]
